FAERS Safety Report 9002639 (Version 1)
Quarter: 2012Q4

REPORT INFORMATION
  Report Type: Spontaneous
  Country: ES (occurrence: None)
  Receive Date: 20121226
  Receipt Date: 20121226
  Transmission Date: 20130627
  Serious: Yes (Hospitalization)
  Sender: FDA-Public Use
  Company Number: 2009EU002860

PATIENT
  Age: 52 Year
  Sex: Male

DRUGS (13)
  1. FK506 [Suspect]
     Indication: PROPHYLAXIS AGAINST RENAL TRANSPLANT REJECTION
     Route: 048
     Dates: start: 20031120
  2. FK506 [Suspect]
     Indication: PROPHYLAXIS AGAINST RENAL TRANSPLANT REJECTION
     Route: 048
     Dates: start: 20040123
  3. MYCOPHENOLATE MOFETIL (MYCOPHENOLATE MOFETIL) [Suspect]
     Indication: PROPHYLAXIS AGAINST RENAL TRANSPLANT REJECTION
     Route: 048
     Dates: start: 20031120, end: 20031209
  4. MYCOPHENOLATE MOFETIL (MYCOPHENOLATE MOFETIL) [Suspect]
     Indication: PROPHYLAXIS AGAINST RENAL TRANSPLANT REJECTION
     Route: 048
     Dates: start: 20031220
  5. DACLIZUMAB [Suspect]
     Indication: PROPHYLAXIS AGAINST RENAL TRANSPLANT REJECTION
     Dosage: total dose NOS
     Route: 042
     Dates: start: 20031120, end: 20031120
  6. DACLIZUMAB [Suspect]
     Indication: PROPHYLAXIS AGAINST RENAL TRANSPLANT REJECTION
     Dosage: Cyclic
     Route: 042
     Dates: start: 20031203
  7. METHYLPREDNISOLONE [Suspect]
     Indication: PROPHYLAXIS AGAINST RENAL TRANSPLANT REJECTION
     Route: 042
     Dates: start: 20031120
  8. METHYLPREDNISOLONE [Suspect]
     Indication: PROPHYLAXIS AGAINST RENAL TRANSPLANT REJECTION
     Dosage: UID
     Route: 042
     Dates: start: 20031211, end: 20031221
  9. PREDNISONE [Suspect]
     Indication: PROPHYLAXIS AGAINST RENAL TRANSPLANT REJECTION
     Dosage: UID
     Route: 048
     Dates: start: 20031121
  10. PREDNISONE [Suspect]
     Indication: PROPHYLAXIS AGAINST RENAL TRANSPLANT REJECTION
     Dosage: UID
     Route: 048
     Dates: start: 20040120
  11. SEPTRIN (SULFAMETHOXAZOLE, TRIMETHOPRIM) [Concomitant]
  12. OMEPRAZOL (OMEPRAZOLE) [Concomitant]
  13. FUROSEMIDE (FUROSEMIDE) [Concomitant]

REACTIONS (3)
  - Cytomegalovirus test positive [None]
  - Diarrhoea [None]
  - Abdominal pain [None]
